APPROVED DRUG PRODUCT: SODIUM LACTATE IN PLASTIC CONTAINER
Active Ingredient: SODIUM LACTATE
Strength: 5MEQ/ML
Dosage Form/Route: INJECTABLE;INJECTION
Application: N018947 | Product #001
Applicant: HOSPIRA INC
Approved: Sep 5, 1984 | RLD: Yes | RS: No | Type: DISCN